FAERS Safety Report 4620028-6 (Version None)
Quarter: 2005Q1

REPORT INFORMATION
  Report Type: 
  Country: None (occurrence: None)
  Receive Date: 20050324
  Receipt Date: 20050311
  Transmission Date: 20050727
  Serious: Yes (Hospitalization)
  Sender: FDA-Public Use
  Company Number: 2004207051FR

PATIENT
  Age: 23 Year
  Sex: Female

DRUGS (6)
  1. FLUCONAZOLE [Suspect]
     Indication: ILL-DEFINED DISORDER
     Dosage: 400 MG (1 IN 1 D), INTRAVENOUS
     Route: 042
     Dates: start: 20031124, end: 20031206
  2. PANTOPRAZOLE SODIUM [Suspect]
     Indication: ILL-DEFINED DISORDER
     Dosage: 40 MG (1 IN 1 D), INTRAVENOUS
     Route: 042
     Dates: start: 20031124, end: 20031204
  3. MEROPENEM (MEROPENEM) [Suspect]
     Indication: ILL-DEFINED DISORDER
     Dosage: 2.45 GRAM (1 IN 1 D), INTRAVENOUS
     Route: 042
  4. LEVOFLOXACIN [Concomitant]
     Indication: ILL-DEFINED DISORDER
     Dosage: 125 MG (1 IN 1 D), INTRAVENOUS
     Route: 042
     Dates: start: 20031124, end: 20031206
  5. HEPARIN SODIUM [Concomitant]
     Indication: ILL-DEFINED DISORDER
     Dosage: SUBCUTANEOUS
     Route: 058
     Dates: start: 20031205, end: 20031215
  6. VANCOMYCIN [Suspect]
     Indication: ILL-DEFINED DISORDER
     Dosage: 1 GRAM (1 IN 1 D), INTRAVENOUS
     Route: 042
     Dates: start: 20031124, end: 20031206

REACTIONS (11)
  - AGRANULOCYTOSIS [None]
  - AORTIC VALVE DISEASE [None]
  - CEREBRAL DISORDER [None]
  - DRUG INEFFECTIVE [None]
  - HEPARIN-INDUCED THROMBOCYTOPENIA [None]
  - HISTIOCYTOSIS HAEMATOPHAGIC [None]
  - MENINGITIS [None]
  - MULTI-ORGAN FAILURE [None]
  - NERVOUS SYSTEM DISORDER [None]
  - SYSTEMIC LUPUS ERYTHEMATOSUS [None]
  - THROMBOCYTOPENIA [None]
